FAERS Safety Report 17165590 (Version 1)
Quarter: 2019Q4

REPORT INFORMATION
  Report Type: Spontaneous
  Country: BG (occurrence: BG)
  Receive Date: 20191217
  Receipt Date: 20191217
  Transmission Date: 20200122
  Serious: Yes (Hospitalization)
  Sender: FDA-Public Use
  Company Number: BG-ASTRAZENECA-2019SF79275

PATIENT
  Age: 67 Year
  Sex: Female

DRUGS (3)
  1. TIOTROPIUM [Concomitant]
     Active Substance: TIOTROPIUM
     Indication: ASTHMA
     Dosage: 2 INHALATIONS DAILY
  2. SALBUTAMOL [Concomitant]
     Active Substance: ALBUTEROL
     Indication: ASTHMA
     Dosage: 2 INHALATIONS DAILY
  3. SYMBICORT [Suspect]
     Active Substance: BUDESONIDE\FORMOTEROL FUMARATE DIHYDRATE
     Indication: ASTHMA
     Dosage: 160X4.5 MCG 2X2 INHALATIONS DAILY AND AS NEEDED
     Route: 055

REACTIONS (1)
  - Asthma [Recovering/Resolving]
